FAERS Safety Report 12509593 (Version 5)
Quarter: 2017Q3

REPORT INFORMATION
  Report Type: Report from Study
  Country: CA (occurrence: CA)
  Receive Date: 20160629
  Receipt Date: 20170710
  Transmission Date: 20171127
  Serious: Yes (Death, Other)
  Sender: FDA-Public Use
  Company Number: CA-INCYTE CORPORATION-2013IN001410

PATIENT

DRUGS (58)
  1. VENTOLINE [Concomitant]
     Active Substance: ALBUTEROL
     Dosage: OT, PRN
     Route: 065
  2. NAPROXEN. [Suspect]
     Active Substance: NAPROXEN
     Indication: ARTHRALGIA
     Route: 065
  3. AMLODIPINE [Concomitant]
     Active Substance: AMLODIPINE BESYLATE
     Dosage: 10 MG, QD
     Route: 065
  4. AMLODIPINE [Concomitant]
     Active Substance: AMLODIPINE BESYLATE
     Dosage: 10 MG, QD
     Route: 065
  5. LANSOPRAZOLE. [Concomitant]
     Active Substance: LANSOPRAZOLE
     Route: 065
  6. VENTOLINE [Concomitant]
     Active Substance: ALBUTEROL
     Indication: PRODUCT USED FOR UNKNOWN INDICATION
     Dosage: UNK
     Route: 065
  7. VENTOLINE [Concomitant]
     Active Substance: ALBUTEROL
     Dosage: OT, PRN
     Route: 065
  8. VENTOLINE [Concomitant]
     Active Substance: ALBUTEROL
     Dosage: OT, PRN
     Route: 065
  9. BABY ASPIRIN [Concomitant]
     Active Substance: ASPIRIN
     Dosage: OT, QD
  10. BABY ASPIRIN [Concomitant]
     Active Substance: ASPIRIN
     Dosage: UNK OT, QD
  11. BABY ASPIRIN [Concomitant]
     Active Substance: ASPIRIN
     Dosage: UNK OT, QD
  12. JAKAVI [Suspect]
     Active Substance: RUXOLITINIB
     Indication: MYELOFIBROSIS
     Dosage: 10 MG, BID
     Route: 048
     Dates: start: 20130529
  13. AMLODIPINE [Concomitant]
     Active Substance: AMLODIPINE BESYLATE
     Dosage: 10 MG, QD
     Route: 065
  14. AMLODIPINE [Concomitant]
     Active Substance: AMLODIPINE BESYLATE
     Dosage: 10 MG, QD
     Route: 065
  15. AMLODIPINE [Concomitant]
     Active Substance: AMLODIPINE BESYLATE
     Dosage: 10 MG, QD
     Route: 065
  16. LANSOPRAZOLE. [Concomitant]
     Active Substance: LANSOPRAZOLE
     Route: 065
  17. LANSOPRAZOLE. [Concomitant]
     Active Substance: LANSOPRAZOLE
     Route: 065
  18. VENTOLINE [Concomitant]
     Active Substance: ALBUTEROL
     Dosage: OT, PRN
     Route: 065
  19. VENTOLINE [Concomitant]
     Active Substance: ALBUTEROL
     Dosage: OT, PRN
     Route: 065
  20. BABY ASPIRIN [Concomitant]
     Active Substance: ASPIRIN
     Dosage: OT, EVERY TWO DAYS
     Route: 065
  21. BABY ASPIRIN [Concomitant]
     Active Substance: ASPIRIN
     Dosage: OT, QD
  22. BABY ASPIRIN [Concomitant]
     Active Substance: ASPIRIN
     Dosage: 80 MG, UNK
     Route: 065
  23. NEXIUM 1-2-3 [Concomitant]
     Active Substance: AMOXICILLIN\CLARITHROMYCIN\ESOMEPRAZOLE
     Indication: PRODUCT USED FOR UNKNOWN INDICATION
     Dosage: UNK
     Route: 065
  24. AMLODIPINE [Concomitant]
     Active Substance: AMLODIPINE BESYLATE
     Dosage: 10 MG, QD
     Route: 065
  25. LANSOPRAZOLE. [Concomitant]
     Active Substance: LANSOPRAZOLE
     Route: 065
  26. VENTOLINE [Concomitant]
     Active Substance: ALBUTEROL
     Dosage: OT, PRN
     Route: 065
  27. BABY ASPIRIN [Concomitant]
     Active Substance: ASPIRIN
     Indication: PRODUCT USED FOR UNKNOWN INDICATION
     Dosage: UNK
     Route: 065
  28. BABY ASPIRIN [Concomitant]
     Active Substance: ASPIRIN
     Dosage: OT, EVERY TWO DAYS
  29. BABY ASPIRIN [Concomitant]
     Active Substance: ASPIRIN
     Dosage: 80 MG, UNK
     Route: 065
  30. BABY ASPIRIN [Concomitant]
     Active Substance: ASPIRIN
     Dosage: OT, EVERY TWO DAYS
  31. AMLODIPINE [Concomitant]
     Active Substance: AMLODIPINE BESYLATE
     Dosage: 10 MG, QD
     Route: 065
  32. AMLODIPINE [Concomitant]
     Active Substance: AMLODIPINE BESYLATE
     Dosage: 10 MG, QD
     Route: 065
  33. LANSOPRAZOLE. [Concomitant]
     Active Substance: LANSOPRAZOLE
     Route: 065
  34. LANSOPRAZOLE. [Concomitant]
     Active Substance: LANSOPRAZOLE
     Route: 065
  35. LANSOPRAZOLE. [Concomitant]
     Active Substance: LANSOPRAZOLE
     Route: 065
  36. BABY ASPIRIN [Concomitant]
     Active Substance: ASPIRIN
     Dosage: OT, QD
  37. LANSOPRAZOLE. [Concomitant]
     Active Substance: LANSOPRAZOLE
     Route: 065
  38. LANSOPRAZOLE. [Concomitant]
     Active Substance: LANSOPRAZOLE
     Route: 065
  39. BABY ASPIRIN [Concomitant]
     Active Substance: ASPIRIN
     Dosage: 80 MG, UNK
     Route: 065
  40. BABY ASPIRIN [Concomitant]
     Active Substance: ASPIRIN
     Dosage: 80 MG, UNK
     Route: 065
  41. BABY ASPIRIN [Concomitant]
     Active Substance: ASPIRIN
     Dosage: OT, EVERY TWO DAYS
  42. BABY ASPIRIN [Concomitant]
     Active Substance: ASPIRIN
     Dosage: OT, QD
  43. BABY ASPIRIN [Concomitant]
     Active Substance: ASPIRIN
     Dosage: UNK OT, QD
  44. HYDREA [Concomitant]
     Active Substance: HYDROXYUREA
     Indication: PRODUCT USED FOR UNKNOWN INDICATION
     Dosage: UNK
     Route: 065
  45. APO-NAPROXEN [Concomitant]
     Active Substance: NAPROXEN
     Indication: PRODUCT USED FOR UNKNOWN INDICATION
     Route: 065
  46. JAKAVI [Suspect]
     Active Substance: RUXOLITINIB
     Dosage: 20 MG, BID
     Route: 048
  47. VOLTAREN [Suspect]
     Active Substance: DICLOFENAC SODIUM
     Indication: ARTHRITIS
     Dosage: UNKNOWN
     Route: 061
  48. AMLODIPINE [Concomitant]
     Active Substance: AMLODIPINE BESYLATE
     Dosage: 10 MG, QD
     Route: 065
  49. LANSOPRAZOLE. [Concomitant]
     Active Substance: LANSOPRAZOLE
     Indication: PRODUCT USED FOR UNKNOWN INDICATION
     Dosage: UNK
     Route: 065
  50. VENTOLINE [Concomitant]
     Active Substance: ALBUTEROL
     Dosage: OT, PRN
     Route: 065
  51. VENTOLINE [Concomitant]
     Active Substance: ALBUTEROL
     Dosage: OT, PRN
     Route: 065
  52. BABY ASPIRIN [Concomitant]
     Active Substance: ASPIRIN
     Dosage: 80 MG, UNK
     Route: 065
  53. BABY ASPIRIN [Concomitant]
     Active Substance: ASPIRIN
     Dosage: OT, QD
  54. JAKAVI [Suspect]
     Active Substance: RUXOLITINIB
     Dosage: 15 MG, BID
     Route: 048
  55. AMLODIPINE [Concomitant]
     Active Substance: AMLODIPINE BESYLATE
     Indication: PRODUCT USED FOR UNKNOWN INDICATION
     Dosage: UNK
     Route: 065
  56. VENTOLINE [Concomitant]
     Active Substance: ALBUTEROL
     Dosage: OT, PRN
     Route: 065
  57. BABY ASPIRIN [Concomitant]
     Active Substance: ASPIRIN
     Dosage: OT, EVERY TWO DAYS
  58. BABY ASPIRIN [Concomitant]
     Active Substance: ASPIRIN
     Dosage: UNK OT, QD

REACTIONS (37)
  - Pain [Not Recovered/Not Resolved]
  - Epistaxis [Unknown]
  - Bone pain [Unknown]
  - Abdominal discomfort [Unknown]
  - Increased appetite [Unknown]
  - Energy increased [Recovering/Resolving]
  - Viral upper respiratory tract infection [Recovering/Resolving]
  - Dyspepsia [Unknown]
  - Musculoskeletal pain [Unknown]
  - Paraesthesia oral [Recovered/Resolved]
  - Neck pain [Unknown]
  - Haemoglobin abnormal [Unknown]
  - Muscular weakness [Unknown]
  - Lymphocyte count decreased [Unknown]
  - Bronchitis [Unknown]
  - Headache [Unknown]
  - Asthenia [Unknown]
  - Arthralgia [Unknown]
  - Contusion [Not Recovered/Not Resolved]
  - Pneumonia [Recovered/Resolved]
  - Hyperaesthesia [Unknown]
  - Dyspnoea [Unknown]
  - Hypoaesthesia oral [Recovered/Resolved]
  - Fatigue [Unknown]
  - Back pain [Unknown]
  - Platelet count decreased [Unknown]
  - Death [Fatal]
  - Nerve compression [Unknown]
  - Malaise [Unknown]
  - Chills [Unknown]
  - Gait disturbance [Unknown]
  - Constipation [Recovering/Resolving]
  - Haemoglobin decreased [Unknown]
  - Pain in extremity [Not Recovered/Not Resolved]
  - Asthma [Unknown]
  - Increased tendency to bruise [Unknown]
  - Splenomegaly [Unknown]

NARRATIVE: CASE EVENT DATE: 201308
